FAERS Safety Report 5405792-0 (Version None)
Quarter: 2007Q3

REPORT INFORMATION
  Report Type: 
  Country: None (occurrence: None)
  Receive Date: 20070806
  Receipt Date: 20070625
  Transmission Date: 20080115
  Serious: Yes (Hospitalization, Other)
  Sender: FDA-Public Use
  Company Number: AU-ELI_LILLY_AND_COMPANY-AU_050908937

PATIENT
  Age: 32 Year
  Sex: Male

DRUGS (2)
  1. ZYPREXA [Suspect]
     Route: 048
     Dates: start: 20020101, end: 20040601
  2. ZYPREXA [Suspect]
     Dosage: UNK, UNK
     Route: 048
     Dates: start: 19960301, end: 20010101

REACTIONS (2)
  - PANCREATITIS NECROTISING [None]
  - PSEUDOCYST [None]
